FAERS Safety Report 7484136-7 (Version None)
Quarter: 2011Q2

REPORT INFORMATION
  Report Type: 
  Country: None (occurrence: None)
  Receive Date: 20110509
  Receipt Date: 20110504
  Transmission Date: 20111010
  Serious: Yes (Hospitalization)
  Sender: FDA-Public Use
  Company Number: SP03658

PATIENT
  Age: 61 Year
  Sex: Male

DRUGS (3)
  1. XIFAXAN [Suspect]
     Indication: BACTERIAL DIARRHOEA
     Dosage: 200 MG (200 MG, 1 IN 1 D), ORAL
     Route: 048
     Dates: start: 20110421, end: 20110423
  2. AMLODIPINE [Suspect]
     Indication: HYPERTENSION
     Dosage: 5 MG (5 MG, 1 IN 1 D), ORAL
     Route: 048
     Dates: start: 20110323, end: 20110423
  3. CARVEDILOL [Suspect]
     Indication: HYPERTENSION
     Dosage: 50 MG (50 MG, 1 IN 1 D), ORAL
     Route: 048
     Dates: start: 20110323, end: 20110423

REACTIONS (3)
  - ARRHYTHMIA [None]
  - PALPITATIONS [None]
  - BACTERIAL DIARRHOEA [None]
